FAERS Safety Report 8726158 (Version 2)
Quarter: 2012Q4

REPORT INFORMATION
  Report Type: 
  Country: IT (occurrence: IT)
  Receive Date: 20120816
  Receipt Date: 20120913
  Transmission Date: 20130627
  Serious: Yes (Life-Threatening)
  Sender: FDA-Public Use
  Company Number: IT-NOVOPROD-357488

PATIENT
  Age: 76 Year
  Sex: Male

DRUGS (1)
  1. NOVONORM [Suspect]
     Indication: PRODUCT USED FOR UNKNOWN INDICATION
     Dosage: 1 Tab, qd
     Route: 048
     Dates: start: 20120704, end: 20120704

REACTIONS (1)
  - Hypoglycaemic coma [Recovered/Resolved]
